FAERS Safety Report 6150486-X (Version None)
Quarter: 2009Q2

REPORT INFORMATION
  Report Type: 
  Country: None (occurrence: None)
  Receive Date: 20090409
  Receipt Date: 20090401
  Transmission Date: 20091009
  Serious: Yes (Hospitalization)
  Sender: FDA-Public Use
  Company Number: US-AVENTIS-200912722US

PATIENT
  Age: 54 Year
  Sex: Female

DRUGS (6)
  1. LANTUS [Suspect]
     Route: 051
  2. LANTUS [Suspect]
     Route: 051
  3. HUMALOG [Concomitant]
     Dosage: DOSE: UNK
  4. ZANTAC [Concomitant]
     Dosage: DOSE: UNK
  5. PREDNISONE TAB [Concomitant]
     Dosage: DOSE: UNK
  6. BENADRYL [Concomitant]
     Dosage: DOSE: UNK

REACTIONS (4)
  - INJECTION SITE ERYTHEMA [None]
  - INJECTION SITE PRURITUS [None]
  - INJECTION SITE RASH [None]
  - PNEUMONIA [None]
